FAERS Safety Report 5883337-9 (Version None)
Quarter: 2008Q3

REPORT INFORMATION
  Report Type: 
  Country: None (occurrence: None)
  Receive Date: 20080912
  Receipt Date: 20080912
  Transmission Date: 20090109
  Serious: Yes (Other)
  Sender: FDA-Public Use
  Company Number: None

PATIENT
  Age: 71 Year
  Sex: Female

DRUGS (3)
  1. DIAZEPAM [Suspect]
     Indication: ANXIETY
  2. DIAZEPAM [Suspect]
     Indication: OBSESSIVE-COMPULSIVE DISORDER
  3. DIAZEPAM [Suspect]
     Indication: PANIC DISORDER

REACTIONS (1)
  - DRUG INEFFECTIVE [None]
